FAERS Safety Report 6372036-5 (Version None)
Quarter: 2009Q3

REPORT INFORMATION
  Report Type: 
  Country: None (occurrence: None)
  Receive Date: 20090917
  Receipt Date: 20090904
  Transmission Date: 20100115
  Serious: Yes (Other)
  Sender: FDA-Public Use
  Company Number: ADR19312009

PATIENT
  Age: 26 Year
  Sex: Female

DRUGS (3)
  1. SALBUTAMOL (MFR: UNKNOWN) [Suspect]
     Dosage: UNKNOWN;INTRAVENOUS
     Route: 042
  2. GLUCOSE [Concomitant]
  3. INSULIN [Concomitant]

REACTIONS (3)
  - BLOOD GLUCOSE INCREASED [None]
  - DIABETIC KETOACIDOSIS [None]
  - KETONURIA [None]
